FAERS Safety Report 6098780-5 (Version None)
Quarter: 2009Q1

REPORT INFORMATION
  Report Type: 
  Country: None (occurrence: None)
  Receive Date: 20090302
  Receipt Date: 20090218
  Transmission Date: 20090719
  Serious: Yes (Death)
  Sender: FDA-Public Use
  Company Number: JP-PFIZER INC-2009173032

PATIENT

DRUGS (3)
  1. SUNITINIB MALATE [Suspect]
     Indication: RENAL CELL CARCINOMA
     Dosage: 25 MG, 1X/DAY
     Route: 048
     Dates: start: 20081002, end: 20081127
  2. MAG-LAX [Concomitant]
     Route: 048
     Dates: start: 20080922, end: 20081114
  3. OXYCONTIN [Concomitant]
     Route: 048
     Dates: start: 20080903, end: 20081127

REACTIONS (1)
  - THROMBOSIS [None]
